FAERS Safety Report 5027488-X (Version None)
Quarter: 2006Q2

REPORT INFORMATION
  Report Type: 
  Country: None (occurrence: None)
  Receive Date: 20060501
  Receipt Date: 20051208
  Transmission Date: 20061013
  Serious: No
  Sender: FDA-Public Use
  Company Number: 2005PV005608

PATIENT
  Age: 66 Year
  Sex: Male
  Weight: 107.9561 kg

DRUGS (3)
  1. SYMLIN [Suspect]
     Indication: DIABETES MELLITUS NON-INSULIN-DEPENDENT
     Dosage: 30 MCG;TID;SC
     Route: 058
     Dates: start: 20051101
  2. LANTUS [Concomitant]
  3. HUMALOG [Concomitant]

REACTIONS (3)
  - FATIGUE [None]
  - NAUSEA [None]
  - WEIGHT INCREASED [None]
